FAERS Safety Report 23968885 (Version 10)
Quarter: 2024Q3

REPORT INFORMATION
  Report Type: Report from Study
  Country: CO (occurrence: CO)
  Receive Date: 20240612
  Receipt Date: 20240924
  Transmission Date: 20241016
  Serious: Yes (Death, Life-Threatening, Hospitalization, Other)
  Sender: PFIZER
  Company Number: CO-TAKEDA-2023TUS055643

PATIENT
  Age: 35 Year
  Sex: Male
  Weight: 98 kg

DRUGS (10)
  1. ADCETRIS [Suspect]
     Active Substance: BRENTUXIMAB VEDOTIN
     Indication: Hodgkin^s disease
     Dosage: 120 MILLIGRAM, Q3WEEKS
     Route: 042
     Dates: start: 20210104, end: 20240719
  2. ADCETRIS [Suspect]
     Active Substance: BRENTUXIMAB VEDOTIN
     Dosage: 120 MILLIGRAM, Q3WEEKS
     Route: 042
     Dates: start: 20210104
  3. ALIZAPRIDE [Suspect]
     Active Substance: ALIZAPRIDE
     Dosage: UNK
     Route: 065
  4. AMMONIUM CHLORIDE\DIPHENHYDRAMINE HYDROCHLORIDE\SODIUM CITRATE [Concomitant]
     Active Substance: AMMONIUM CHLORIDE\DIPHENHYDRAMINE HYDROCHLORIDE\SODIUM CITRATE
     Indication: Premedication
     Dosage: 50 MILLIGRAM
     Route: 065
  5. ONDANSETRON HYDROCHLORIDE [Concomitant]
     Active Substance: ONDANSETRON HYDROCHLORIDE
     Dosage: 8 MILLIGRAM
     Route: 065
  6. ENOXAPARIN [Concomitant]
     Active Substance: ENOXAPARIN
     Dosage: 80 MILLIGRAM
     Route: 065
  7. ESOMEPRAZOLE [Concomitant]
     Active Substance: ESOMEPRAZOLE
     Dosage: 40 MILLIGRAM
     Route: 048
  8. DEFERASIROX [Concomitant]
     Active Substance: DEFERASIROX
     Dosage: 360 MILLIGRAM
     Route: 048
  9. ACETAMINOPHEN [Concomitant]
     Active Substance: ACETAMINOPHEN
     Indication: Premedication
     Dosage: UNK
     Route: 065
  10. ONDANSETRON HYDROCHLORIDE [Concomitant]
     Active Substance: ONDANSETRON HYDROCHLORIDE
     Dosage: 8 MILLIGRAM
     Route: 065

REACTIONS (68)
  - Death [Fatal]
  - Pulmonary embolism [Unknown]
  - Erectile dysfunction [Unknown]
  - Suicidal ideation [Unknown]
  - Pulmonary mass [Unknown]
  - Delirium [Recovered/Resolved]
  - Dehydration [Unknown]
  - Vital functions abnormal [Unknown]
  - Lung disorder [Unknown]
  - Pneumonia [Unknown]
  - Neoplasm progression [Unknown]
  - Decreased appetite [Not Recovered/Not Resolved]
  - Cough [Not Recovered/Not Resolved]
  - Tachycardia [Unknown]
  - Arthralgia [Unknown]
  - Vomiting [Recovered/Resolved]
  - Nausea [Unknown]
  - Constipation [Unknown]
  - Haemoptysis [Unknown]
  - Pain [Unknown]
  - Irritability [Recovered/Resolved]
  - Anger [Recovered/Resolved]
  - Feeling hot [Unknown]
  - Feeling abnormal [Unknown]
  - Thinking abnormal [Unknown]
  - Stress [Unknown]
  - Insomnia [Unknown]
  - Chest pain [Recovered/Resolved]
  - Productive cough [Unknown]
  - Depressed mood [Unknown]
  - Malaise [Unknown]
  - Weight decreased [Unknown]
  - Muscle spasms [Recovered/Resolved]
  - Anxiety [Unknown]
  - Cold sweat [Recovered/Resolved]
  - Weight increased [Unknown]
  - Mass [Unknown]
  - Sinusitis [Unknown]
  - Facial pain [Unknown]
  - Nasal congestion [Unknown]
  - Rhinorrhoea [Unknown]
  - Skin discharge [Recovered/Resolved]
  - Feeling of despair [Unknown]
  - Throat clearing [Unknown]
  - Bronchitis [Unknown]
  - Breath sounds abnormal [Unknown]
  - Loss of libido [Unknown]
  - Dysuria [Unknown]
  - Cystitis noninfective [Unknown]
  - Urine output decreased [Unknown]
  - Rhonchi [Unknown]
  - Illness [Unknown]
  - Blood creatinine increased [Unknown]
  - Underdose [Unknown]
  - Wheezing [Unknown]
  - Oxygen saturation decreased [Unknown]
  - Restrictive pulmonary disease [Unknown]
  - Chest discomfort [Unknown]
  - Crying [Unknown]
  - Dizziness [Recovered/Resolved]
  - Influenza [Unknown]
  - Asthenia [Unknown]
  - Fatigue [Unknown]
  - Discouragement [Recovered/Resolved]
  - Dyspnoea [Unknown]
  - Product administration error [Unknown]
  - Product prescribing error [Unknown]
  - Product dose omission issue [Unknown]

NARRATIVE: CASE EVENT DATE: 20230101
